FAERS Safety Report 11379594 (Version 1)
Quarter: 2015Q3

REPORT INFORMATION
  Report Type: Spontaneous
  Country: CH (occurrence: None)
  Receive Date: 20150812
  Receipt Date: 20150812
  Transmission Date: 20151125
  Serious: Yes (Death)
  Sender: FDA-Public Use
  Company Number: NL01PV15_39421

PATIENT
  Age: 65 Year
  Sex: Female

DRUGS (15)
  1. TRAZODONE [Suspect]
     Active Substance: TRAZODONE HYDROCHLORIDE
  2. METAMIZOLE (METAMIZOLE) [Concomitant]
     Active Substance: METAMIZOLE
  3. ETHANOL (ETHANOL) [Suspect]
     Active Substance: ALCOHOL
  4. BISOPROLOL (BISOPROLOL) [Concomitant]
     Active Substance: BISOPROLOL
  5. CITALOPRAM (CITALOPRAM) [Suspect]
     Active Substance: CITALOPRAM HYDROBROMIDE
  6. BUTALBITAL (BUTALBITAL) [Suspect]
     Active Substance: BUTALBITAL
  7. DEXTROMETHORPHAN (DEXTROMETHORPHAN) [Concomitant]
     Active Substance: DEXTROMETHORPHAN
  8. PENTOBARBITAL (PENTOBARBITAL) [Suspect]
     Active Substance: PENTOBARBITAL
  9. METHOCLOPRAMIDE (METHOCLOPRAMIDE) [Concomitant]
  10. DIAZEPAM (DIAZEPAM) [Suspect]
     Active Substance: DIAZEPAM
  11. FLUNITRAZEPAM (FLUNITRAZEPAM) [Suspect]
     Active Substance: FLUNITRAZEPAM
  12. LOPERAMIDE (LOPERAMIDE) [Concomitant]
     Active Substance: LOPERAMIDE
  13. ZOLPIDEM [Suspect]
     Active Substance: ZOLPIDEM\ZOLPIDEM TARTRATE
  14. TRAMADOL (TRAMADOL) [Concomitant]
     Active Substance: TRAMADOL
  15. PROPYPHENAZONE (PROPYPHENAZONE) [Concomitant]

REACTIONS (13)
  - Completed suicide [None]
  - Pulmonary oedema [None]
  - Intentional overdose [None]
  - Tracheitis [None]
  - Aspiration [None]
  - Intentional product misuse [None]
  - Pharyngitis [None]
  - Brain oedema [None]
  - Necrosis [None]
  - Peritoneal perforation [None]
  - Toxicity to various agents [None]
  - Injection site necrosis [None]
  - Fat necrosis [None]
